FAERS Safety Report 25835103 (Version 1)
Quarter: 2025Q3

REPORT INFORMATION
  Report Type: Report from Study
  Country: US (occurrence: US)
  Receive Date: 20250923
  Receipt Date: 20250923
  Transmission Date: 20251020
  Serious: Yes (Other)
  Sender: ALEXION PHARMACEUTICALS
  Company Number: US-AstraZeneca-CH-00954170A

PATIENT
  Sex: Female

DRUGS (1)
  1. FORMOTEROL FUMARATE\GLYCOPYRROLATE [Suspect]
     Active Substance: FORMOTEROL FUMARATE\GLYCOPYRROLATE
     Route: 065

REACTIONS (16)
  - Aortic dilatation [Unknown]
  - Senile osteoporosis [Unknown]
  - Depression [Unknown]
  - Dyslipidaemia [Unknown]
  - Gastrooesophageal reflux disease [Unknown]
  - Hypothyroidism [Unknown]
  - Iron deficiency anaemia [Unknown]
  - Essential hypertension [Unknown]
  - Insomnia [Unknown]
  - Muscle rupture [Unknown]
  - Drug dependence [Unknown]
  - Chronic obstructive pulmonary disease [Unknown]
  - Back pain [Unknown]
  - Sciatica [Unknown]
  - Barrett^s oesophagus [Unknown]
  - Cardiac failure [Unknown]
